FAERS Safety Report 21119475 (Version 1)
Quarter: 2022Q3

REPORT INFORMATION
  Report Type: Spontaneous
  Country: CN (occurrence: CN)
  Receive Date: 20220722
  Receipt Date: 20220722
  Transmission Date: 20221027
  Serious: Yes (Other)
  Sender: FDA-Public Use
  Company Number: CN-PFIZER INC-202200988944

PATIENT
  Age: 63 Year
  Sex: Male

DRUGS (4)
  1. TIGECYCLINE [Suspect]
     Active Substance: TIGECYCLINE
     Dosage: 50 MG, Q12H
     Route: 042
     Dates: start: 20211004, end: 20211008
  2. SODIUM CHLORIDE [Concomitant]
     Active Substance: SODIUM CHLORIDE
     Dosage: 100 ML, Q12H
     Route: 042
     Dates: start: 20211004, end: 20211008
  3. ENOXAPARIN SODIUM [Concomitant]
     Active Substance: ENOXAPARIN SODIUM
     Dosage: 4000 IU, BID
     Route: 058
     Dates: start: 20211004, end: 20211006
  4. HEPARIN SODIUM [Concomitant]
     Active Substance: HEPARIN SODIUM
     Dosage: 4250 IU, BID
     Route: 058
     Dates: start: 20211006, end: 20211015

REACTIONS (5)
  - Therapeutic product effect incomplete [Unknown]
  - Body temperature increased [Unknown]
  - Aspergillus test positive [Unknown]
  - Procalcitonin increased [Unknown]
  - Haemoglobin decreased [Unknown]

NARRATIVE: CASE EVENT DATE: 20211001
